FAERS Safety Report 14155386 (Version 2)
Quarter: 2017Q4

REPORT INFORMATION
  Report Type: Spontaneous
  Country: FR (occurrence: FR)
  Receive Date: 20171103
  Receipt Date: 20171218
  Transmission Date: 20180321
  Serious: Yes (Hospitalization)
  Sender: FDA-Public Use
  Company Number: PHHY2017FR156796

PATIENT
  Age: 46 Year
  Sex: Female

DRUGS (2)
  1. NALMEFENE [Interacting]
     Active Substance: NALMEFENE
     Indication: DRUG USE DISORDER
     Dosage: 1 DF, UNK
     Route: 065
  2. BUPRENORPHINE. [Suspect]
     Active Substance: BUPRENORPHINE
     Indication: DRUG USE DISORDER
     Dosage: UNK
     Route: 065

REACTIONS (8)
  - Muscle spasms [Unknown]
  - Drug interaction [Unknown]
  - Myalgia [Recovered/Resolved]
  - Drug withdrawal syndrome [Unknown]
  - Hyperhidrosis [Recovered/Resolved]
  - Nausea [Recovered/Resolved]
  - Flushing [Recovered/Resolved]
  - Psychomotor hyperactivity [Recovered/Resolved]
